FAERS Safety Report 9539189 (Version 3)
Quarter: 2013Q4

REPORT INFORMATION
  Report Type: Report from Study
  Country: PR (occurrence: PR)
  Receive Date: 20130920
  Receipt Date: 20131213
  Transmission Date: 20140711
  Serious: Yes (Other)
  Sender: FDA-Public Use
  Company Number: PR-ABBVIE-13P-131-1148243-00

PATIENT
  Age: 67 Year
  Sex: Male

DRUGS (4)
  1. HUMIRA [Suspect]
     Indication: PSORIASIS
     Route: 058
     Dates: start: 2012
  2. TRAMADOL [Suspect]
     Indication: ARTHRALGIA
  3. PROTONIX [Concomitant]
     Indication: GASTRIC DISORDER
     Route: 048
     Dates: start: 201303
  4. CIALIS [Concomitant]
     Indication: SUPPLEMENTATION THERAPY
     Route: 048
     Dates: start: 201307

REACTIONS (13)
  - Meniscus injury [Not Recovered/Not Resolved]
  - Dizziness [Unknown]
  - Chills [Unknown]
  - Tremor [Unknown]
  - Hypercholesterolaemia [Not Recovered/Not Resolved]
  - Arthroscopy [Recovered/Resolved]
  - Meniscus injury [Recovered/Resolved]
  - Hypercholesterolaemia [Unknown]
  - Hypertriglyceridaemia [Unknown]
  - Hypertriglyceridaemia [Unknown]
  - Hypercholesterolaemia [Unknown]
  - Dyspepsia [Unknown]
  - Hernia [Unknown]
